FAERS Safety Report 21959750 (Version 1)
Quarter: 2023Q1

REPORT INFORMATION
  Report Type: Spontaneous
  Country: AU (occurrence: AU)
  Receive Date: 20230206
  Receipt Date: 20230206
  Transmission Date: 20230417
  Serious: Yes (Hospitalization)
  Sender: FDA-Public Use
  Company Number: AU-BoehringerIngelheim-2023-BI-215380

PATIENT
  Age: 76 Year
  Sex: Male

DRUGS (2)
  1. PRAMIPEXOLE [Suspect]
     Active Substance: PRAMIPEXOLE
     Indication: Product used for unknown indication
  2. PRAMIPEXOLE [Suspect]
     Active Substance: PRAMIPEXOLE

REACTIONS (5)
  - Cardiac operation [Unknown]
  - Accidental overdose [Unknown]
  - Confusional state [Unknown]
  - Disorientation [Unknown]
  - Hallucination [Unknown]
